FAERS Safety Report 6407858-5 (Version None)
Quarter: 2009Q4

REPORT INFORMATION
  Report Type: 
  Country: None (occurrence: None)
  Receive Date: 20091015
  Receipt Date: 20091001
  Transmission Date: 20100525
  Serious: Yes (Hospitalization, Other)
  Sender: FDA-Public Use
  Company Number: MIN-00395

PATIENT
  Age: 15 Year
  Sex: Male

DRUGS (3)
  1. MINOCYCLINE, 100MG [Suspect]
     Indication: ACNE
     Dosage: 100 MG QD                     12-16 MONTHS
  2. IBUPROFEN [Concomitant]
  3. NAPROXEN [Concomitant]

REACTIONS (18)
  - ALANINE AMINOTRANSFERASE INCREASED [None]
  - ASPARTATE AMINOTRANSFERASE INCREASED [None]
  - AUTOIMMUNE HEPATITIS [None]
  - BLOOD ALKALINE PHOSPHATASE INCREASED [None]
  - BLOOD BILIRUBIN INCREASED [None]
  - COAGULOPATHY [None]
  - CONTUSION [None]
  - EPISTAXIS [None]
  - FIBROMUSCULAR DYSPLASIA [None]
  - HEPATIC CIRRHOSIS [None]
  - HYPERTENSION [None]
  - INTERNATIONAL NORMALISED RATIO INCREASED [None]
  - PETECHIAE [None]
  - PROTHROMBIN TIME PROLONGED [None]
  - RENAL ARTERY STENOSIS [None]
  - RENAL HYPERTROPHY [None]
  - SPLENOMEGALY [None]
  - THROMBOCYTOPENIA [None]
